FAERS Safety Report 24753249 (Version 1)
Quarter: 2024Q4

REPORT INFORMATION
  Report Type: Spontaneous
  Country: FR (occurrence: FR)
  Receive Date: 20241219
  Receipt Date: 20241219
  Transmission Date: 20250115
  Serious: Yes (Hospitalization, Other)
  Sender: SANOFI AVENTIS
  Company Number: None

PATIENT
  Age: 65 Year
  Sex: Male

DRUGS (6)
  1. RIVAROXABAN [Interacting]
     Active Substance: RIVAROXABAN
     Indication: Atrial fibrillation
     Dosage: 20 MG, QD
     Route: 048
     Dates: end: 20240710
  2. RIVAROXABAN [Interacting]
     Active Substance: RIVAROXABAN
     Dosage: 20 MG, QD
     Route: 048
     Dates: start: 20240715, end: 20240720
  3. LOVENOX [Interacting]
     Active Substance: ENOXAPARIN SODIUM
     Indication: Thrombosis prophylaxis
     Dosage: 8000 IU, BID
     Route: 058
     Dates: start: 20240711, end: 202407
  4. LOVENOX [Interacting]
     Active Substance: ENOXAPARIN SODIUM
     Dosage: 8000 IU, QD
     Route: 058
     Dates: start: 20240720, end: 202407
  5. LOVENOX [Interacting]
     Active Substance: ENOXAPARIN SODIUM
     Dosage: 4000 IU, QD
     Route: 058
     Dates: start: 20240722, end: 202407
  6. LOVENOX [Interacting]
     Active Substance: ENOXAPARIN SODIUM
     Dosage: 8000 IU, BID
     Route: 058
     Dates: start: 20240816, end: 2024

REACTIONS (5)
  - Haematoma infection [Recovered/Resolved]
  - Surgical procedure repeated [Recovered/Resolved]
  - Haematoma [Recovered/Resolved]
  - Anaemia [Recovered/Resolved]
  - Transcription medication error [Unknown]

NARRATIVE: CASE EVENT DATE: 20240718
